FAERS Safety Report 9386241 (Version 1)
Quarter: 2013Q3

REPORT INFORMATION
  Report Type: Spontaneous
  Country: US (occurrence: US)
  Receive Date: 20130708
  Receipt Date: 20130708
  Transmission Date: 20140515
  Serious: Yes (Death, Hospitalization, Other)
  Sender: FDA-Public Use
  Company Number: US-AMGEN-USASP2013047527

PATIENT
  Age: 65 Year
  Sex: Male

DRUGS (7)
  1. ENBREL [Suspect]
     Indication: RHEUMATOID ARTHRITIS
     Dosage: UNK
     Route: 065
  2. ARAVA [Suspect]
     Indication: RHEUMATOID ARTHRITIS
     Dosage: 20 MG, QD
     Route: 048
     Dates: start: 20130409, end: 20130516
  3. PREDNISONE [Concomitant]
     Indication: RHEUMATOID ARTHRITIS
     Dosage: 30 MG, QD
     Dates: start: 201212
  4. FORTEO [Concomitant]
     Dosage: UNK
     Dates: start: 20130108
  5. MTX                                /00113801/ [Concomitant]
     Dosage: UNK
  6. ORENCIA [Concomitant]
     Dosage: UNK
  7. PLAQUENIL                          /00072602/ [Concomitant]
     Dosage: UNK

REACTIONS (5)
  - Respiratory failure [Fatal]
  - Pneumonia [Fatal]
  - Septic shock [Fatal]
  - Stevens-Johnson syndrome [Unknown]
  - Rash [Unknown]
